FAERS Safety Report 21320775 (Version 8)
Quarter: 2023Q1

REPORT INFORMATION
  Report Type: Spontaneous
  Country: US (occurrence: US)
  Receive Date: 20220912
  Receipt Date: 20230310
  Transmission Date: 20230417
  Serious: No
  Sender: FDA-Public Use
  Company Number: US-NOVARTISTESTPH-NVSC2022US204892

PATIENT
  Sex: Female

DRUGS (6)
  1. MEKINIST [Suspect]
     Active Substance: TRAMETINIB DIMETHYL SULFOXIDE
     Indication: Lung neoplasm malignant
     Dosage: 1 MG, QD
     Route: 048
     Dates: start: 20220823
  2. MEKINIST [Suspect]
     Active Substance: TRAMETINIB DIMETHYL SULFOXIDE
     Indication: Metastasis
     Dosage: 1 MG, QD
     Route: 048
     Dates: start: 202208
  3. MEKINIST [Suspect]
     Active Substance: TRAMETINIB DIMETHYL SULFOXIDE
     Dosage: 1 MG, QD
     Route: 048
     Dates: start: 20221115
  4. TAFINLAR [Suspect]
     Active Substance: DABRAFENIB MESYLATE
     Indication: Lung neoplasm malignant
     Dosage: 75 MG, Q12H
     Route: 048
     Dates: start: 20220823
  5. TAFINLAR [Suspect]
     Active Substance: DABRAFENIB MESYLATE
     Indication: Metastasis
     Dosage: 75 MG, Q12H
     Route: 048
     Dates: start: 202208
  6. TAFINLAR [Suspect]
     Active Substance: DABRAFENIB MESYLATE
     Dosage: 75 MG, Q12H
     Route: 048
     Dates: start: 20221207

REACTIONS (8)
  - Eye pain [Unknown]
  - Pain [Unknown]
  - Dry eye [Unknown]
  - Nausea [Unknown]
  - Visual impairment [Unknown]
  - Genital swelling [Unknown]
  - Dysgeusia [Unknown]
  - Vision blurred [Unknown]
